FAERS Safety Report 16807731 (Version 2)
Quarter: 2019Q3

REPORT INFORMATION
  Report Type: Spontaneous
  Country: DE (occurrence: DE)
  Receive Date: 20190915
  Receipt Date: 20190917
  Transmission Date: 20191005
  Serious: Yes (Life-Threatening, Hospitalization)
  Sender: FDA-Public Use
  Company Number: DE-JNJFOC-20190907426

PATIENT
  Age: 40 Year
  Sex: Male

DRUGS (5)
  1. MODAFINIL. [Suspect]
     Active Substance: MODAFINIL
     Indication: PRODUCT USED FOR UNKNOWN INDICATION
     Dosage: RECEIVED THREE SINGLE DOSES
     Route: 065
  2. ACETAMINOPHEN. [Suspect]
     Active Substance: ACETAMINOPHEN
     Indication: PYREXIA
  3. IBUPROFEN. [Suspect]
     Active Substance: IBUPROFEN
     Indication: INFLUENZA LIKE ILLNESS
     Dosage: DRUG START PERIOD-1 WEEK
     Route: 065
  4. ACETAMINOPHEN. [Suspect]
     Active Substance: ACETAMINOPHEN
     Indication: INFLUENZA LIKE ILLNESS
     Route: 065
  5. IBUPROFEN. [Suspect]
     Active Substance: IBUPROFEN
     Indication: PYREXIA

REACTIONS (8)
  - Pneumonia [Recovered/Resolved]
  - Angina pectoris [Recovered/Resolved]
  - Respiratory failure [Recovered/Resolved]
  - Eosinophilic pleural effusion [Recovered/Resolved]
  - Therapeutic product effect incomplete [Unknown]
  - Cardiogenic shock [Recovered/Resolved]
  - Eosinophilic myocarditis [Recovered/Resolved]
  - Drug hypersensitivity [Recovered/Resolved]
